FAERS Safety Report 8543362-6 (Version None)
Quarter: 2012Q3

REPORT INFORMATION
  Report Type: 
  Country: None (occurrence: None)
  Receive Date: 20120727
  Receipt Date: 20120719
  Transmission Date: 20120928
  Serious: Yes (Hospitalization)
  Sender: FDA-Public Use
  Company Number: US-PURDUE-USA-2012-0086610

PATIENT
  Sex: Female
  Weight: 69.4 kg

DRUGS (30)
  1. HYDROMORPHONE HCL [Concomitant]
     Indication: PAIN
     Dosage: 1.2 MG, Q2H
     Route: 042
     Dates: start: 20120411, end: 20120413
  2. DOCUSATE SODIUM [Concomitant]
     Indication: CONSTIPATION
     Dosage: 100 MG, QD PRN
     Route: 048
     Dates: start: 20120418
  3. HYDROCODONE BITARTRATE AND ACETAMINOPHEN [Concomitant]
     Indication: PAIN
     Dosage: 325/10MG EVERY 4 HOURS
     Route: 048
     Dates: start: 20120411, end: 20120414
  4. DOCUSATE [Concomitant]
     Indication: CONSTIPATION
     Dosage: 50 MG, DOCUSATE LIQUID BID
     Route: 048
     Dates: start: 20120412, end: 20120412
  5. POLYETHYLENE GLYCOL [Concomitant]
     Indication: CONSTIPATION
     Dosage: 17 G, BID
     Route: 042
     Dates: start: 20120412, end: 20120416
  6. HYDROMORPHONE HCL [Concomitant]
     Dosage: 12.55 MG, PRN
     Route: 042
     Dates: start: 20120414, end: 20120419
  7. LORAZEPAM [Concomitant]
     Indication: NAUSEA
     Dosage: 1 MG, Q4H PRN
     Route: 042
     Dates: start: 20120414, end: 20120415
  8. ONDANSETRON [Concomitant]
     Dosage: 4 MG, Q6H PRN
     Route: 042
     Dates: start: 20120414, end: 20120420
  9. IBUPROFEN [Concomitant]
     Indication: PAIN
     Dosage: 600 MG, SINGLE
     Route: 048
     Dates: start: 20120411, end: 20120411
  10. KETOROLAC TROMETHAMINE [Concomitant]
     Indication: PAIN
     Dosage: 30 MG, Q6H
     Route: 042
     Dates: start: 20120412, end: 20120414
  11. NALOXONE [Concomitant]
     Indication: PRURITUS
     Dosage: 200 MCG, UNK
     Route: 042
     Dates: start: 20120414, end: 20120420
  12. NAPROXEN [Concomitant]
     Indication: PAIN
     Dosage: 250 MG, BID
     Route: 048
     Dates: start: 20120411, end: 20120412
  13. HYDROMORPHONE HCL [Concomitant]
     Dosage: 1.2 MG, Q2H
     Route: 042
     Dates: start: 20120419, end: 20120420
  14. NALBUPHINE [Concomitant]
     Indication: PRURITUS
     Dosage: 5 MG, SINGLE
     Route: 042
     Dates: start: 20120414, end: 20120414
  15. ONDANSETRON [Concomitant]
     Indication: NAUSEA
     Dosage: 8 MG, Q6H PRN
     Route: 048
     Dates: start: 20120412, end: 20120412
  16. DIPHENHYDRAMINE                    /00000402/ [Concomitant]
     Indication: PRURITUS
     Dosage: UNK UNK, SINGLE
     Route: 061
     Dates: start: 20120413, end: 20120413
  17. AMITRIPTYLENE [Concomitant]
     Indication: HEADACHE
     Dosage: 40 MG, HS
     Route: 048
     Dates: start: 20090701
  18. HYDROXYZINE [Concomitant]
     Dosage: 25 MG, Q6H PRN
     Route: 048
     Dates: start: 20120412, end: 20120414
  19. LORAZEPAM [Concomitant]
     Dosage: 0.5 MG, Q4H PRN
     Route: 042
     Dates: start: 20120415, end: 20120418
  20. OXYCODONE HCL [Suspect]
     Dosage: 50 MG, BID
     Route: 048
     Dates: start: 20120427, end: 20120503
  21. OXYCODONE HCL [Concomitant]
     Indication: PAIN
     Dosage: 5 MG, Q6H PRN
     Route: 048
     Dates: start: 20120414, end: 20120415
  22. SENNA                              /00142201/ [Concomitant]
     Indication: CONSTIPATION
     Dosage: 1-2 TABLETS TWICE DIALY
     Route: 048
     Dates: start: 20120414, end: 20120416
  23. HYDROXYZINE [Concomitant]
     Indication: PRURITUS
     Dosage: 50 MG, SINGLE
     Route: 048
     Dates: start: 20120411, end: 20120411
  24. PENICILLIN [Concomitant]
     Indication: INFECTION PROPHYLAXIS
     Dosage: 250 MG, BID
     Route: 042
     Dates: start: 20080101
  25. OXYCODONE HCL [Suspect]
     Indication: PAIN
     Dosage: 40 MG, BID
     Route: 048
     Dates: start: 20120420, end: 20120427
  26. OXYCODONE HCL [Concomitant]
     Dosage: 10 MG, Q4H PRN
     Route: 048
     Dates: start: 20120415, end: 20120420
  27. OXYCODONE HCL [Concomitant]
     Indication: PAIN
     Dosage: 40 MG, BID
     Dates: start: 20120413, end: 20120419
  28. CEFTRIAXONE [Concomitant]
     Indication: PYREXIA
     Dosage: 2000 MG, UNK
     Route: 042
     Dates: start: 20120415, end: 20120415
  29. DOCUSATE [Concomitant]
     Dosage: 50 MG, DOCUSATE LIQUID BID
     Dates: start: 20120413, end: 20120413
  30. IBUPROFEN [Concomitant]
     Dosage: 600 MG, SINGLE
     Route: 048
     Dates: start: 20120419, end: 20120419

REACTIONS (9)
  - STATUS MIGRAINOSUS [None]
  - INADEQUATE ANALGESIA [None]
  - MATERNAL EXPOSURE DURING PREGNANCY [None]
  - HAEMATOCRIT DECREASED [None]
  - RED BLOOD CELL COUNT DECREASED [None]
  - HAEMOGLOBIN DECREASED [None]
  - RED CELL DISTRIBUTION WIDTH INCREASED [None]
  - RETICULOCYTE COUNT INCREASED [None]
  - BLOOD CHLORIDE INCREASED [None]
